FAERS Safety Report 8449178-3 (Version None)
Quarter: 2012Q2

REPORT INFORMATION
  Report Type: 
  Country: None (occurrence: None)
  Receive Date: 20120619
  Receipt Date: 20111214
  Transmission Date: 20120825
  Serious: Yes (Hospitalization, Other)
  Sender: FDA-Public Use
  Company Number: US-TEVA-2011006259

PATIENT
  Sex: Female

DRUGS (2)
  1. ACTIQ [Suspect]
     Indication: HEMIPLEGIC MIGRAINE
     Dosage: 400 MICROGRAM;
     Route: 002
     Dates: start: 20090101, end: 20111129
  2. DILAUDID [Concomitant]
     Indication: HEMIPLEGIC MIGRAINE
     Dosage: 4 MILLIGRAM;

REACTIONS (4)
  - DRUG PRESCRIBING ERROR [None]
  - VOMITING [None]
  - ABDOMINAL DISCOMFORT [None]
  - NAUSEA [None]
